FAERS Safety Report 5546052-7 (Version None)
Quarter: 2007Q4

REPORT INFORMATION
  Report Type: 
  Country: None (occurrence: None)
  Receive Date: 20071211
  Receipt Date: 20070906
  Transmission Date: 20080405
  Serious: No
  Sender: FDA-Public Use
  Company Number: US-BRISTOL-MYERS SQUIBB COMPANY-13900287

PATIENT
  Age: 61 Year
  Sex: Female

DRUGS (6)
  1. EMSAM [Suspect]
     Indication: DEPRESSION
     Route: 062
  2. CYMBALTA [Concomitant]
  3. TRAZODONE HCL [Concomitant]
  4. METFORMIN HCL [Concomitant]
  5. LISINOPRIL [Concomitant]
  6. HYDROCHLOROTHIAZIDE [Concomitant]

REACTIONS (1)
  - DIPLOPIA [None]
